FAERS Safety Report 8136131-2 (Version None)
Quarter: 2012Q1

REPORT INFORMATION
  Report Type: 
  Country: None (occurrence: None)
  Receive Date: 20120214
  Receipt Date: 20120206
  Transmission Date: 20120608
  Serious: No
  Sender: FDA-Public Use
  Company Number: US-COVIDIEN/TYCO HEALTHCARE/MALLINCKRODT-T201200417

PATIENT
  Sex: Female

DRUGS (2)
  1. FENTANYL-100 [Suspect]
     Indication: PAIN
     Dosage: 75 MCG/HR PATCH, EVERY 3 DAYS
     Route: 062
     Dates: start: 20120106
  2. VICODIN [Concomitant]
     Indication: BREAKTHROUGH PAIN
     Dosage: UNK, PRN
     Route: 048

REACTIONS (2)
  - BREAKTHROUGH PAIN [None]
  - DRUG EFFECT DECREASED [None]
